FAERS Safety Report 6315649-9 (Version None)
Quarter: 2009Q3

REPORT INFORMATION
  Report Type: 
  Country: None (occurrence: None)
  Receive Date: 20090818
  Receipt Date: 20090805
  Transmission Date: 20100115
  Serious: Yes (Hospitalization)
  Sender: FDA-Public Use
  Company Number: 2009250541

PATIENT
  Age: 46 Year
  Sex: Male

DRUGS (2)
  1. FRAGMIN [Suspect]
     Indication: PROPHYLAXIS
     Dates: start: 20090401, end: 20090508
  2. PHENOXYMETHYL PENICILLIN [Suspect]
     Indication: PNEUMONIA
     Dates: start: 20090401

REACTIONS (3)
  - DYSPNOEA [None]
  - PNEUMONIA [None]
  - URTICARIA [None]
